FAERS Safety Report 4978075-0 (Version None)
Quarter: 2006Q2

REPORT INFORMATION
  Report Type: 
  Country: None (occurrence: None)
  Receive Date: 20060414
  Receipt Date: 20060407
  Transmission Date: 20061013
  Serious: Yes (Life-Threatening, Other)
  Sender: FDA-Public Use
  Company Number: 2006-02-0144

PATIENT
  Age: 69 Year
  Sex: Female

DRUGS (16)
  1. ADENOSINE [Suspect]
     Indication: DIAGNOSTIC PROCEDURE
     Dosage: 140 MG/KG/MM INTRAVENOUS
     Route: 042
     Dates: start: 20050108, end: 20050108
  2. PEG-INTRON [Suspect]
     Indication: HEPATITIS C
  3. RIBAVIRIN [Suspect]
     Indication: HEPATITIS C
     Dosage: ORAL
     Route: 048
  4. LANSOPRAZOLE [Concomitant]
  5. ACTIGALL [Concomitant]
  6. CELLCEPT [Concomitant]
  7. PREDNISONE TAB [Concomitant]
  8. TACROLIMUS [Concomitant]
  9. CSPOFUNGIN ACETATE [Concomitant]
  10. DARBEPOETIN ALFA [Concomitant]
  11. DILTIAZEM HYDROCHLORIDE [Concomitant]
  12. IMIPENEM-CILASTIN SODIUM [Concomitant]
  13. LACTULOSE [Concomitant]
  14. METRONIDAZOLE [Concomitant]
  15. PROTAMINE [Concomitant]
  16. INSULIN [Concomitant]

REACTIONS (12)
  - ATRIAL FIBRILLATION [None]
  - DILATATION ATRIAL [None]
  - DISEASE RECURRENCE [None]
  - DRUG INTERACTION [None]
  - HAEMODIALYSIS [None]
  - HEART VALVE INSUFFICIENCY [None]
  - HYPOTENSION [None]
  - PLEURAL EFFUSION [None]
  - PNEUMONIA [None]
  - RENAL FAILURE [None]
  - SINUS ARREST [None]
  - SINUS BRADYCARDIA [None]
